FAERS Safety Report 7327988-3 (Version None)
Quarter: 2011Q1

REPORT INFORMATION
  Report Type: 
  Country: None (occurrence: None)
  Receive Date: 20110217
  Receipt Date: 20110210
  Transmission Date: 20110831
  Serious: Yes (Other)
  Sender: FDA-Public Use
  Company Number: 2011SP005513

PATIENT
  Age: 39 Year
  Sex: Female
  Weight: 51.2565 kg

DRUGS (7)
  1. BLINDED CORIFOLLITROPIN ALFA [Suspect]
     Indication: IN VITRO FERTILISATION
     Dosage: 300 IU;SC
     Route: 058
     Dates: start: 20110112, end: 20110118
  2. GANIRELIX ACETATE INJECTION [Suspect]
     Indication: IN VITRO FERTILISATION
     Dosage: SC
     Route: 058
     Dates: start: 20110116, end: 20110121
  3. OVIDREL [Suspect]
     Indication: IN VITRO FERTILISATION
     Dosage: ONCE;SC
     Route: 058
     Dates: start: 20110121, end: 20110121
  4. BLINDED CORIFOLLITROPIN ALFA [Suspect]
     Indication: IN VITRO FERTILISATION
     Dosage: 150 MCG;ONCE;SC
     Route: 058
     Dates: start: 20110112, end: 20110112
  5. PRENATAL VITAMINS [Concomitant]
  6. ACETAMINOPHEN [Concomitant]
  7. FOLLISTIM AQ [Suspect]
     Indication: IN VITRO FERTILISATION
     Dosage: SC
     Route: 058
     Dates: start: 20110119, end: 20110120

REACTIONS (4)
  - OVARIAN HYPERSTIMULATION SYNDROME [None]
  - ENDOMETRIAL HYPERTROPHY [None]
  - ULTRASOUND SCAN VAGINA ABNORMAL [None]
  - BLOOD HUMAN CHORIONIC GONADOTROPIN INCREASED [None]
